FAERS Safety Report 5693088-1 (Version None)
Quarter: 2008Q2

REPORT INFORMATION
  Report Type: 
  Country: None (occurrence: None)
  Receive Date: 20080402
  Receipt Date: 20080402
  Transmission Date: 20081010
  Serious: Yes (Other)
  Sender: FDA-Public Use
  Company Number: None

PATIENT
  Age: 58 Year
  Sex: Male
  Weight: 101.6057 kg

DRUGS (3)
  1. EFALIZUMAB, 1MG/KG, GENENTECH [Suspect]
     Indication: PSORIASIS
     Dosage: 1MG/KG/WEEK 1ONCE WEEKLY SQ
     Route: 058
     Dates: start: 20030101, end: 20070101
  2. ALLOPURINOL [Concomitant]
  3. INDOMETHACIN [Concomitant]

REACTIONS (6)
  - BACK PAIN [None]
  - HAEMORRHAGE [None]
  - MUSCULOSKELETAL CHEST PAIN [None]
  - NODULE [None]
  - PYREXIA [None]
  - SKIN LESION [None]
